FAERS Safety Report 24966769 (Version 1)
Quarter: 2025Q1

REPORT INFORMATION
  Report Type: Spontaneous
  Country: US (occurrence: US)
  Receive Date: 20250213
  Receipt Date: 20250213
  Transmission Date: 20250408
  Serious: Yes (Other)
  Sender: ANI
  Company Number: US-ANIPHARMA-2025-US-005799

PATIENT
  Age: 44 Year
  Sex: Female
  Weight: 62.14 kg

DRUGS (3)
  1. CORTICOTROPIN [Suspect]
     Active Substance: CORTICOTROPIN
     Indication: Multiple sclerosis
     Route: 058
     Dates: start: 20250120, end: 20250128
  2. OXYBUTYNIN [Concomitant]
     Active Substance: OXYBUTYNIN
  3. NUVIGIL [Concomitant]
     Active Substance: ARMODAFINIL

REACTIONS (12)
  - Swelling face [Unknown]
  - Blood pressure increased [Recovering/Resolving]
  - Generalised oedema [Unknown]
  - Vomiting [Unknown]
  - Haematochezia [Unknown]
  - Joint swelling [Unknown]
  - Dyspnoea [Unknown]
  - Muscular weakness [Unknown]
  - Abnormal weight gain [Unknown]
  - Gait inability [Unknown]
  - Incorrect dose administered [Recovered/Resolved]
  - Intentional product misuse [Recovered/Resolved]

NARRATIVE: CASE EVENT DATE: 20250120
